FAERS Safety Report 4751998-3 (Version None)
Quarter: 2005Q3

REPORT INFORMATION
  Report Type: 
  Country: None (occurrence: None)
  Receive Date: 20050824
  Receipt Date: 20050324
  Transmission Date: 20060218
  Serious: Yes (Hospitalization, Disabling, Other)
  Sender: FDA-Public Use
  Company Number: US-MERCK-0503USA04581

PATIENT
  Age: 41 Year
  Sex: Female
  Weight: 73 kg

DRUGS (6)
  1. VIOXX [Suspect]
     Indication: CREST SYNDROME
     Route: 048
     Dates: start: 19990101, end: 20020101
  2. VIOXX [Suspect]
     Route: 048
     Dates: start: 19990101, end: 20020101
  3. VIOXX [Suspect]
     Indication: ARTHRITIS
     Route: 048
     Dates: start: 19990101, end: 20020101
  4. VIOXX [Suspect]
     Route: 048
     Dates: start: 19990101, end: 20020101
  5. ZANTAC [Concomitant]
     Route: 065
  6. CELEBREX [Concomitant]
     Route: 065
     Dates: start: 19990101, end: 20020101

REACTIONS (49)
  - ANGINA PECTORIS [None]
  - ANXIETY [None]
  - ASTHENIA [None]
  - ASTHMA [None]
  - BACK PAIN [None]
  - CARDIAC FAILURE CONGESTIVE [None]
  - CHRONIC OBSTRUCTIVE PULMONARY DISEASE [None]
  - COAGULOPATHY [None]
  - COMA [None]
  - CORONARY ARTERY DISEASE [None]
  - COSTOCHONDRITIS [None]
  - COUGH [None]
  - DEEP VEIN THROMBOSIS [None]
  - DEPRESSION [None]
  - DIABETES MELLITUS [None]
  - DIARRHOEA [None]
  - DYSPNOEA [None]
  - ECCHYMOSIS [None]
  - FAECES DISCOLOURED [None]
  - FIBROMYALGIA [None]
  - GLAUCOMA [None]
  - HAEMOPTYSIS [None]
  - HEARING IMPAIRED [None]
  - HYPERLIPIDAEMIA [None]
  - HYPERSENSITIVITY [None]
  - HYPERTENSION [None]
  - INCREASED TENDENCY TO BRUISE [None]
  - INFECTION [None]
  - INSOMNIA [None]
  - INTRACRANIAL ANEURYSM [None]
  - JOINT SWELLING [None]
  - MENTAL DISORDER [None]
  - MYOCARDIAL INFARCTION [None]
  - NAUSEA [None]
  - NIGHT SWEATS [None]
  - OBESITY [None]
  - OEDEMA [None]
  - ORAL INTAKE REDUCED [None]
  - PAIN [None]
  - PANIC DISORDER [None]
  - PNEUMONIA [None]
  - PNEUMONIA STAPHYLOCOCCAL [None]
  - PRESCRIBED OVERDOSE [None]
  - PULMONARY EMBOLISM [None]
  - PULMONARY OEDEMA [None]
  - SCHIZOPHRENIA [None]
  - SLEEP APNOEA SYNDROME [None]
  - TEMPERATURE INTOLERANCE [None]
  - THIRST [None]
